FAERS Safety Report 20894972 (Version 1)
Quarter: 2022Q2

REPORT INFORMATION
  Report Type: Spontaneous
  Country: US (occurrence: US)
  Receive Date: 20220531
  Receipt Date: 20220531
  Transmission Date: 20220721
  Serious: No
  Sender: FDA-Public Use
  Company Number: US-ORGANON-O2205USA001820

PATIENT
  Sex: Female

DRUGS (5)
  1. FOLLISTIM AQ [Suspect]
     Active Substance: FOLLITROPIN
     Indication: Infertility female
     Dosage: 300 UNIT/0.36 ML, INJECT 150-225 UNITS UNDER THE SKIN DAILY USE AS DIRECTED
     Route: 058
     Dates: start: 20210112
  2. ASPIRIN [Concomitant]
     Active Substance: ASPIRIN
     Dosage: UNK
  3. FOLIC ACID [Concomitant]
     Active Substance: FOLIC ACID
     Dosage: UNK
  4. PRENATAL U [Concomitant]
     Dosage: 106.5-1
  5. VITAMIN C [Concomitant]
     Active Substance: ASCORBIC ACID

REACTIONS (1)
  - Abdominal pain [Recovered/Resolved]
